FAERS Safety Report 5869229-X (Version None)
Quarter: 2008Q3

REPORT INFORMATION
  Report Type: 
  Country: None (occurrence: None)
  Receive Date: 20080903
  Receipt Date: 20080821
  Transmission Date: 20090109
  Serious: Yes (Hospitalization, Other)
  Sender: FDA-Public Use
  Company Number: US-ELI_LILLY_AND_COMPANY-US200808004724

PATIENT
  Age: 58 Year
  Sex: Male

DRUGS (5)
  1. BYETTA [Suspect]
     Dosage: 10 UG, UNKNOWN
     Route: 065
     Dates: start: 20071227, end: 20080717
  2. CIALIS [Concomitant]
     Dosage: 20 MG, UNKNOWN
     Route: 065
  3. AMARYL [Concomitant]
     Dosage: 1 MG, UNKNOWN
     Route: 065
  4. PRAVASTATIN [Concomitant]
     Dosage: UNK, UNKNOWN
     Route: 065
  5. METFORMIN HCL [Concomitant]
     Dosage: UNK, UNKNOWN
     Route: 065
     Dates: end: 20071227

REACTIONS (2)
  - PANCREATITIS ACUTE [None]
  - WEIGHT DECREASED [None]
